FAERS Safety Report 5742342-3 (Version None)
Quarter: 2008Q2

REPORT INFORMATION
  Report Type: 
  Country: None (occurrence: None)
  Receive Date: 20080519
  Receipt Date: 20080507
  Transmission Date: 20081010
  Serious: Yes (Hospitalization)
  Sender: FDA-Public Use
  Company Number: JP-JNJFOC-20080404499

PATIENT
  Sex: Male
  Weight: 50 kg

DRUGS (11)
  1. REMICADE [Suspect]
     Route: 042
  2. REMICADE [Suspect]
     Route: 042
  3. REMICADE [Suspect]
     Indication: RHEUMATOID ARTHRITIS
     Dosage: THIRD INFUSION
     Route: 042
  4. METHOTREXATE [Concomitant]
     Indication: RHEUMATOID ARTHRITIS
     Route: 048
  5. LOXONIN [Concomitant]
     Route: 048
  6. FOLIAMIN [Concomitant]
     Route: 048
  7. ISCOTIN [Concomitant]
     Route: 048
  8. MARZULENE S [Concomitant]
     Route: 048
  9. VOLTAREN [Concomitant]
     Route: 054
  10. VENA [Concomitant]
     Route: 048
  11. CALONAL [Concomitant]
     Route: 048

REACTIONS (2)
  - ATYPICAL MYCOBACTERIAL INFECTION [None]
  - BRONCHIECTASIS [None]
